FAERS Safety Report 6287302-1 (Version None)
Quarter: 2009Q3

REPORT INFORMATION
  Report Type: 
  Country: None (occurrence: None)
  Receive Date: 20090716
  Receipt Date: 20081114
  Transmission Date: 20100115
  Serious: Yes (Hospitalization)
  Sender: FDA-Public Use
  Company Number: 2008BI031109

PATIENT
  Age: 16 Year
  Sex: Female
  Weight: 52.6173 kg

DRUGS (7)
  1. AVONEX [Suspect]
     Indication: MULTIPLE SCLEROSIS
     Dosage: 30 UG;QW;IM
     Dates: start: 20000101, end: 20000101
  2. DITROPAN [Concomitant]
  3. LEXAPRO [Concomitant]
  4. MACRODANTIN [Concomitant]
  5. YASMIN [Concomitant]
  6. DESMOPRESSIN ACETATE [Concomitant]
  7. ACETATE [Concomitant]

REACTIONS (1)
  - MULTIPLE SCLEROSIS RELAPSE [None]
